FAERS Safety Report 9097557 (Version 2)
Quarter: 2013Q1

REPORT INFORMATION
  Report Type: Spontaneous
  Country: US (occurrence: US)
  Receive Date: 20130212
  Receipt Date: 20130219
  Transmission Date: 20140127
  Serious: Yes (Other)
  Sender: FDA-Public Use
  Company Number: US-PFIZER INC-2013051623

PATIENT
  Age: 41 Year
  Sex: Male
  Weight: 97.51 kg

DRUGS (1)
  1. DIFLUCAN [Suspect]
     Indication: COCCIDIOIDOMYCOSIS
     Dosage: 400 MG, 1X/DAY
     Route: 048
     Dates: start: 200609, end: 200705

REACTIONS (11)
  - Convulsion [Not Recovered/Not Resolved]
  - Paralysis [Unknown]
  - Systemic lupus erythematosus [Not Recovered/Not Resolved]
  - Mental impairment [Not Recovered/Not Resolved]
  - Hypersensitivity [Unknown]
  - Inflammation [Not Recovered/Not Resolved]
  - Paraesthesia [Not Recovered/Not Resolved]
  - Dizziness [Not Recovered/Not Resolved]
  - Nausea [Not Recovered/Not Resolved]
  - Balance disorder [Not Recovered/Not Resolved]
  - Amnesia [Not Recovered/Not Resolved]
